FAERS Safety Report 16282018 (Version 2)
Quarter: 2019Q2

REPORT INFORMATION
  Report Type: Report from Study
  Country: US (occurrence: US)
  Receive Date: 20190507
  Receipt Date: 20190628
  Transmission Date: 20190711
  Serious: Yes (Hospitalization)
  Sender: FDA-Public Use
  Company Number: US-ROCHE-2311289

PATIENT
  Age: 65 Year
  Sex: Female
  Weight: 76.6 kg

DRUGS (3)
  1. ATEZOLIZUMAB. [Suspect]
     Active Substance: ATEZOLIZUMAB
     Indication: MALIGNANT PERITONEAL NEOPLASM
     Dosage: LAST DOSE OF ATEZOLIZUMAB PRIOR TO SERIOUS ADVERSE EVENT: 30/AUG/2018?LAST DOSE OF ATEZOLIZUMAB PRIO
     Route: 042
     Dates: start: 20180111, end: 20181213
  2. LIPOSOMAL DOXORUBICIN HYDROCHLORIDE [Suspect]
     Active Substance: DOXORUBICIN HYDROCHLORIDE
     Indication: MALIGNANT PERITONEAL NEOPLASM
     Dosage: LAST DOSE OF LIPOSOMAL DOXORUBICIN (55 MG) PRIOR TO SERIOUS ADVERSE EVENT: 30/AUG/2018?LAST DOSE OF
     Route: 042
     Dates: start: 20180111, end: 20181213
  3. BEVACIZUMAB. [Suspect]
     Active Substance: BEVACIZUMAB
     Indication: MALIGNANT PERITONEAL NEOPLASM
     Dosage: LAST DOSE OF BEVACIZUMAB (800 MG) PRIOR TO SERIOUS ADVERSE EVENT: 30/AUG/2018?LAST DOSE OF BEVACIZUM
     Route: 042
     Dates: start: 20180111, end: 20181024

REACTIONS (1)
  - Small intestinal obstruction [Not Recovered/Not Resolved]

NARRATIVE: CASE EVENT DATE: 20180909
